FAERS Safety Report 6230881-0 (Version None)
Quarter: 2009Q2

REPORT INFORMATION
  Report Type: 
  Country: None (occurrence: None)
  Receive Date: 20090616
  Receipt Date: 20090603
  Transmission Date: 20091009
  Serious: Yes (Other)
  Sender: FDA-Public Use
  Company Number: PHHY2009JP21977

PATIENT
  Age: 69 Year
  Sex: Male

DRUGS (3)
  1. CYCLOSPORINE [Suspect]
     Route: 048
  2. CYCLOSPORINE [Suspect]
     Route: 048
  3. PREDNISOLONE [Concomitant]
     Route: 048

REACTIONS (5)
  - ADRENAL INSUFFICIENCY [None]
  - ARTHRALGIA [None]
  - DRUG INTERACTION [None]
  - PULMONARY TUBERCULOSIS [None]
  - PYREXIA [None]
